FAERS Safety Report 10766014 (Version 10)
Quarter: 2016Q2

REPORT INFORMATION
  Report Type: Report from Study
  Country: US (occurrence: US)
  Receive Date: 20150205
  Receipt Date: 20160418
  Transmission Date: 20160815
  Serious: Yes (Death, Life-Threatening, Hospitalization)
  Sender: FDA-Public Use
  Company Number: US-SA-2015SA010163

PATIENT
  Age: 50 Year
  Sex: Female
  Weight: 67.85 kg

DRUGS (34)
  1. ALEMTUZUMAB [Suspect]
     Active Substance: ALEMTUZUMAB
     Indication: MULTIPLE SCLEROSIS
     Dosage: TOTAL DOSE: 36MG
     Route: 065
     Dates: start: 201210
  2. BACLOFEN. [Concomitant]
     Active Substance: BACLOFEN
     Dosage: TOTAL: 100MG PER DAY
     Route: 048
     Dates: end: 20150130
  3. IBUPROFEN. [Concomitant]
     Active Substance: IBUPROFEN
     Dates: end: 20150130
  4. PROMETHAZINE [Concomitant]
     Active Substance: PROMETHAZINE\PROMETHAZINE HYDROCHLORIDE
     Dates: start: 201501, end: 20150130
  5. ALEMTUZUMAB [Suspect]
     Active Substance: ALEMTUZUMAB
     Indication: MULTIPLE SCLEROSIS
     Route: 065
     Dates: start: 200808
  6. NEURONTIN [Concomitant]
     Active Substance: GABAPENTIN
     Dates: end: 20150130
  7. CELEXA [Concomitant]
     Active Substance: CITALOPRAM HYDROBROMIDE
     Dates: end: 20150130
  8. LASIX [Concomitant]
     Active Substance: FUROSEMIDE
     Dates: end: 20150130
  9. LEVOTHYROXINE. [Concomitant]
     Active Substance: LEVOTHYROXINE
     Dates: end: 20150130
  10. AZATHIOPRINE. [Concomitant]
     Active Substance: AZATHIOPRINE
     Indication: EOSINOPHILIC PNEUMONIA
     Route: 048
     Dates: end: 20150130
  11. AMBIEN [Concomitant]
     Active Substance: ZOLPIDEM TARTRATE
     Dates: end: 20150130
  12. OXYCODONE [Concomitant]
     Active Substance: OXYCODONE
     Dates: end: 20150130
  13. REQUIP [Concomitant]
     Active Substance: ROPINIROLE HYDROCHLORIDE
     Dates: end: 20150130
  14. ALEMTUZUMAB [Suspect]
     Active Substance: ALEMTUZUMAB
     Indication: MULTIPLE SCLEROSIS
     Route: 065
     Dates: start: 200911
  15. ALEMTUZUMAB [Suspect]
     Active Substance: ALEMTUZUMAB
     Indication: MULTIPLE SCLEROSIS
     Route: 065
     Dates: start: 201109
  16. CITALOPRAM [Concomitant]
     Active Substance: CITALOPRAM HYDROBROMIDE
     Route: 048
     Dates: end: 20150130
  17. GABAPENTIN. [Concomitant]
     Active Substance: GABAPENTIN
     Route: 048
     Dates: end: 20150130
  18. PREDNISONE. [Concomitant]
     Active Substance: PREDNISONE
     Route: 048
     Dates: end: 20150130
  19. QVAR [Concomitant]
     Active Substance: BECLOMETHASONE DIPROPIONATE
     Dates: end: 20150130
  20. ROPINIROLE. [Concomitant]
     Active Substance: ROPINIROLE
     Route: 048
     Dates: end: 20150130
  21. SYNTHROID [Concomitant]
     Active Substance: LEVOTHYROXINE SODIUM
     Route: 048
     Dates: end: 20150130
  22. BETASERON [Concomitant]
     Active Substance: INTERFERON BETA-1B
     Indication: MULTIPLE SCLEROSIS
     Dates: start: 200710, end: 20150130
  23. ATARAX [Concomitant]
     Active Substance: HYDROXYZINE\HYDROXYZINE HYDROCHLORIDE
     Dates: end: 20150130
  24. ALEMTUZUMAB [Suspect]
     Active Substance: ALEMTUZUMAB
     Indication: MULTIPLE SCLEROSIS
     Route: 065
     Dates: start: 201009
  25. ACYCLOVIR. [Concomitant]
     Active Substance: ACYCLOVIR
     Route: 048
     Dates: end: 20150130
  26. VITAMIN D [Concomitant]
     Active Substance: CHOLECALCIFEROL
     Dosage: DOSE:5000 UNIT(S)
     Route: 048
     Dates: end: 20150130
  27. ZOLPIDEM [Concomitant]
     Active Substance: ZOLPIDEM\ZOLPIDEM TARTRATE
     Route: 048
     Dates: end: 20150130
  28. HYDROMORPHONE [Concomitant]
     Active Substance: HYDROMORPHONE
     Dates: start: 201501, end: 20150130
  29. ZANAFLEX [Concomitant]
     Active Substance: TIZANIDINE HYDROCHLORIDE
     Dates: end: 20150130
  30. ACETAMINOPHEN. [Concomitant]
     Active Substance: ACETAMINOPHEN
     Dates: end: 20150130
  31. IMURAN [Concomitant]
     Active Substance: AZATHIOPRINE
     Dosage: 3 TABLETS BY MOUTH
     Route: 048
     Dates: end: 20150130
  32. SYMBICORT [Concomitant]
     Active Substance: BUDESONIDE\FORMOTEROL FUMARATE DIHYDRATE
     Dosage: 160-4.5 MCG/ACTUATION HFA AEROSOL INHALER
     Route: 055
     Dates: start: 201407, end: 20150130
  33. TIZANIDINE. [Concomitant]
     Active Substance: TIZANIDINE
     Dates: end: 20150130
  34. SOLU-MEDROL [Concomitant]
     Active Substance: METHYLPREDNISOLONE SODIUM SUCCINATE
     Dates: start: 201205, end: 20150130

REACTIONS (4)
  - Intraventricular haemorrhage [Not Recovered/Not Resolved]
  - Cerebral haemorrhage [Fatal]
  - Basal ganglia haemorrhage [Not Recovered/Not Resolved]
  - Vasculitis cerebral [Fatal]

NARRATIVE: CASE EVENT DATE: 20150125
